FAERS Safety Report 11055116 (Version 1)
Quarter: 2015Q2

REPORT INFORMATION
  Report Type: Spontaneous
  Country: US (occurrence: None)
  Receive Date: 20150421
  Receipt Date: 20150421
  Transmission Date: 20150821
  Serious: Yes (Disabling)
  Sender: FDA-Public Use
  Company Number: None

PATIENT
  Age: 14 Year
  Sex: Male
  Weight: 65.77 kg

DRUGS (2)
  1. PREVACID [Suspect]
     Active Substance: LANSOPRAZOLE
     Indication: GASTROOESOPHAGEAL REFLUX DISEASE
     Route: 048
  2. VIACTIV [Concomitant]
     Active Substance: CALCIUM\VITAMIN D\VITAMIN K5

REACTIONS (4)
  - Fracture delayed union [None]
  - Tibia fracture [None]
  - Fibula fracture [None]
  - Wrist fracture [None]

NARRATIVE: CASE EVENT DATE: 20150212
